FAERS Safety Report 23104503 (Version 1)
Quarter: 2023Q4

REPORT INFORMATION
  Report Type: Spontaneous
  Country: US (occurrence: None)
  Receive Date: 20231024
  Receipt Date: 20231024
  Transmission Date: 20240109
  Serious: No
  Sender: FDA-Public Use
  Company Number: None

PATIENT
  Age: 59 Year
  Sex: Female
  Weight: 96.75 kg

DRUGS (1)
  1. REGENER-EYES LITE [Suspect]
     Active Substance: GLYCERIN
     Indication: Dry eye
     Dosage: OTHER QUANTITY : 1 DROP(S);?FREQUENCY : DAILY;?
     Route: 047

REACTIONS (7)
  - Eye pain [None]
  - Vision blurred [None]
  - Dizziness [None]
  - Headache [None]
  - Ocular discomfort [None]
  - Hypoaesthesia eye [None]
  - Lip disorder [None]
